FAERS Safety Report 10758223 (Version 1)
Quarter: 2015Q1

REPORT INFORMATION
  Report Type: Spontaneous
  Country: US (occurrence: US)
  Receive Date: 20150203
  Receipt Date: 20150203
  Transmission Date: 20150721
  Serious: No
  Sender: FDA-Public Use
  Company Number: US-ELI_LILLY_AND_COMPANY-US201501005923

PATIENT
  Sex: Female

DRUGS (1)
  1. FORTEO [Suspect]
     Active Substance: TERIPARATIDE
     Indication: INJURY
     Dosage: UNK, UNKNOWN
     Route: 065

REACTIONS (3)
  - Contusion [Unknown]
  - Fracture [Unknown]
  - Off label use [Unknown]
